FAERS Safety Report 19118841 (Version 1)
Quarter: 2021Q2

REPORT INFORMATION
  Report Type: Spontaneous
  Country: US (occurrence: US)
  Receive Date: 20210410
  Receipt Date: 20210410
  Transmission Date: 20210717
  Serious: Yes (Death)
  Sender: FDA-Public Use
  Company Number: US-TEVA-2021-US-1897403

PATIENT
  Sex: Female

DRUGS (1)
  1. TREPROSTINIL TEVA [Suspect]
     Active Substance: TREPROSTINIL
     Indication: PULMONARY ARTERIAL HYPERTENSION
     Dosage: DOSE 109 NG/KG/MIN (CONTINUOUS)
     Route: 042

REACTIONS (1)
  - Death [Fatal]
